FAERS Safety Report 7601795-6 (Version None)
Quarter: 2011Q3

REPORT INFORMATION
  Report Type: 
  Country: None (occurrence: None)
  Receive Date: 20110711
  Receipt Date: 20110702
  Transmission Date: 20111222
  Serious: Yes (Hospitalization)
  Sender: FDA-Public Use
  Company Number: BR-ASTRAZENECA-2011SE40005

PATIENT
  Age: 63 Year
  Sex: Female
  Weight: 61 kg

DRUGS (5)
  1. ATACAND [Suspect]
     Route: 048
     Dates: start: 20110501, end: 20110601
  2. CLONAZEPAM [Concomitant]
     Indication: INSOMNIA
     Route: 048
     Dates: start: 20070101
  3. CRESTOR [Suspect]
     Route: 048
     Dates: start: 20110601
  4. ATACAND [Suspect]
     Indication: HYPERTENSION
     Route: 048
     Dates: start: 20070101, end: 20110501
  5. CRESTOR [Suspect]
     Indication: HYPERCHOLESTEROLAEMIA
     Route: 048
     Dates: start: 20070101, end: 20110601

REACTIONS (8)
  - SINUSITIS [None]
  - DRUG INEFFECTIVE [None]
  - NASAL OPERATION [None]
  - BLOOD PRESSURE INADEQUATELY CONTROLLED [None]
  - NASAL SEPTUM DEVIATION [None]
  - OSTEOARTHRITIS [None]
  - GASTROOESOPHAGEAL REFLUX DISEASE [None]
  - NERVOUSNESS [None]
